FAERS Safety Report 24699468 (Version 5)
Quarter: 2025Q1

REPORT INFORMATION
  Report Type: Spontaneous
  Country: DE (occurrence: DE)
  Receive Date: 20241205
  Receipt Date: 20250120
  Transmission Date: 20250408
  Serious: Yes (Hospitalization)
  Sender: ABBVIE
  Company Number: None

PATIENT
  Age: 73 Year
  Sex: Male
  Weight: 73 kg

DRUGS (3)
  1. OZURDEX [Suspect]
     Active Substance: DEXAMETHASONE
     Indication: Macular oedema
     Route: 050
     Dates: start: 202205, end: 202409
  2. OZURDEX [Suspect]
     Active Substance: DEXAMETHASONE
     Route: 050
  3. Bepanthen [Concomitant]
     Indication: Eye disorder
     Route: 050
     Dates: start: 2020

REACTIONS (4)
  - Eyelid ptosis [Recovered/Resolved]
  - Complication of device insertion [Not Recovered/Not Resolved]
  - Eyelid ptosis [Recovered/Resolved]
  - Eyelid ptosis [Recovered/Resolved]

NARRATIVE: CASE EVENT DATE: 20220101
